FAERS Safety Report 6172014-5 (Version None)
Quarter: 2009Q2

REPORT INFORMATION
  Report Type: 
  Country: None (occurrence: None)
  Receive Date: 20090428
  Receipt Date: 20090428
  Transmission Date: 20091009
  Serious: Yes (Other)
  Sender: FDA-Public Use
  Company Number: None

PATIENT
  Age: 58 Year
  Sex: Female
  Weight: 63.5036 kg

DRUGS (1)
  1. SPORT SUNBLOCK LOTION SPF 30 +WATERPROOF, SWEATPROOF BANANA BOAD [Suspect]
     Indication: PROPHYLAXIS AGAINST SOLAR RADIATION
     Dosage: ABOUT A TEASPOON TO EACH ARM ONCE
     Dates: start: 20090417, end: 20090417

REACTIONS (3)
  - APPLICATION SITE PRURITUS [None]
  - APPLICATION SITE RASH [None]
  - EXPIRED DRUG ADMINISTERED [None]
